FAERS Safety Report 6592024-3 (Version None)
Quarter: 2010Q1

REPORT INFORMATION
  Report Type: 
  Country: None (occurrence: None)
  Receive Date: 20100221
  Receipt Date: 20091106
  Transmission Date: 20100710
  Serious: No
  Sender: FDA-Public Use
  Company Number: US-ALLERGAN-0911767US

PATIENT
  Age: 50 Year
  Sex: Male

DRUGS (1)
  1. BOTOX [Suspect]
     Indication: FACIAL SPASM
     Dosage: 12.5 UNITS, UNK
     Dates: start: 20090604, end: 20090604

REACTIONS (2)
  - FACIAL PARESIS [None]
  - THERAPEUTIC RESPONSE DECREASED [None]
